FAERS Safety Report 8774096 (Version 1)
Quarter: 2012Q4

REPORT INFORMATION
  Report Type: Report from Study
  Country: CA (occurrence: CA)
  Receive Date: 20120907
  Receipt Date: 20120907
  Transmission Date: 20130627
  Serious: Yes (Hospitalization, Other)
  Sender: FDA-Public Use
  Company Number: CA-JNJFOC-20120813642

PATIENT
  Age: 68 None
  Sex: Female
  Weight: 71.67 kg

DRUGS (7)
  1. REMICADE [Suspect]
     Indication: CROHN^S DISEASE
     Route: 042
     Dates: start: 20070501
  2. SYNTHROID [Concomitant]
     Route: 065
  3. NORVASC [Concomitant]
     Route: 065
  4. VITAMIN B12 [Concomitant]
     Route: 048
  5. ECASA [Concomitant]
     Route: 065
  6. FOLIC ACID [Concomitant]
     Route: 065
  7. SALAGEN [Concomitant]
     Route: 065

REACTIONS (4)
  - Chest pain [Recovered/Resolved]
  - Pancreatitis [Recovered/Resolved]
  - Cholelithiasis [Recovered/Resolved]
  - Decreased appetite [Unknown]
